FAERS Safety Report 4553229-6 (Version None)
Quarter: 2005Q1

REPORT INFORMATION
  Report Type: 
  Country: None (occurrence: None)
  Receive Date: 20050113
  Receipt Date: 20041230
  Transmission Date: 20050727
  Serious: Yes (Hospitalization, Disabling)
  Sender: FDA-Public Use
  Company Number: 8008317

PATIENT
  Age: 66 Year
  Sex: Male
  Weight: 95 kg

DRUGS (5)
  1. KEPPRA [Suspect]
     Indication: EPILEPSY
     Dosage: 500MG/D PO
     Route: 048
     Dates: start: 20041023, end: 20041116
  2. KEPPRA [Suspect]
     Indication: EPILEPSY
     Dosage: 750MG/D PO
     Route: 048
     Dates: start: 20041023, end: 20041116
  3. LASILIX [Concomitant]
  4. OMEPRAZOLE [Concomitant]
  5. EUCALCIC [Concomitant]

REACTIONS (3)
  - ANAEMIA [None]
  - HAEMORRHAGE [None]
  - LEUKOPENIA [None]
